FAERS Safety Report 25563156 (Version 1)
Quarter: 2025Q3

REPORT INFORMATION
  Report Type: Other
  Country: EU (occurrence: EU)
  Receive Date: 20250716
  Receipt Date: 20250716
  Transmission Date: 20251020
  Serious: Yes (Death, Hospitalization, Other)
  Sender: LUPIN
  Company Number: EU-AMK-289199

PATIENT
  Age: 80 Year
  Sex: Male

DRUGS (12)
  1. LEVETIRACETAM [Suspect]
     Active Substance: LEVETIRACETAM
     Indication: Epilepsy
     Dosage: 500 MILLIGRAM, TID (1-0-2)
     Route: 065
     Dates: start: 202502
  2. LEVETIRACETAM [Suspect]
     Active Substance: LEVETIRACETAM
     Indication: Epilepsy
     Dosage: 250 MILLIGRAM, BID, 1-0-1
     Dates: start: 20250610, end: 20250614
  3. ASPIRIN [Concomitant]
     Active Substance: ASPIRIN
     Indication: Product used for unknown indication
     Dosage: 100 MILLIGRAM, QD, 1-0-0
     Dates: start: 20250607, end: 20250620
  4. Piperacillin plus tazobactam eberth [Concomitant]
     Indication: Product used for unknown indication
     Dosage: 1 DOSAGE FORM, Q8H, 1-1-1
     Dates: start: 20250611, end: 20250620
  5. Ampicillin plus sulbactam eberth [Concomitant]
     Indication: Product used for unknown indication
     Dosage: 1 DOSAGE FORM, Q8H, 1-1-1
     Dates: start: 20250607, end: 20250610
  6. PANTOPRAZOLE SODIUM [Concomitant]
     Active Substance: PANTOPRAZOLE SODIUM
     Indication: Product used for unknown indication
     Dosage: 20 MILLIGRAM, QD, 1-0-0
     Dates: start: 20250607, end: 20250620
  7. SODIUM BICARBONATE [Concomitant]
     Active Substance: SODIUM BICARBONATE
     Indication: Product used for unknown indication
     Dosage: 1 GRAM, Q8H, 1-1-1
     Dates: start: 20250607, end: 20250612
  8. PANCRELIPASE [Concomitant]
     Active Substance: PANCRELIPASE
     Indication: Product used for unknown indication
     Dates: start: 20250607, end: 20250620
  9. Clopidogrel TAD [Concomitant]
     Indication: Product used for unknown indication
     Dosage: 75 MILLIGRAM, QD, 1-0-0
     Dates: start: 20250607, end: 20250609
  10. TORSEMIDE [Concomitant]
     Active Substance: TORSEMIDE
     Indication: Product used for unknown indication
     Dosage: 10 MILLIGRAM, QD, 1-0-0
     Dates: start: 20250607, end: 20250611
  11. BISOPROLOL FUMARATE [Concomitant]
     Active Substance: BISOPROLOL FUMARATE
     Indication: Product used for unknown indication
     Dates: start: 20250607, end: 20250620
  12. SIMVASTATIN [Concomitant]
     Active Substance: SIMVASTATIN
     Indication: Product used for unknown indication
     Dosage: 20 MILLIGRAM, QD, 0-0-1
     Dates: start: 20250607, end: 20250609

REACTIONS (4)
  - Toxic epidermal necrolysis [Fatal]
  - Stevens-Johnson syndrome [Fatal]
  - Septic shock [Fatal]
  - Skin reaction [Unknown]

NARRATIVE: CASE EVENT DATE: 20250201
